FAERS Safety Report 23587393 (Version 1)
Quarter: 2024Q1

REPORT INFORMATION
  Report Type: Spontaneous
  Country: US (occurrence: US)
  Receive Date: 20240301
  Receipt Date: 20240301
  Transmission Date: 20240410
  Serious: No
  Sender: FDA-Public Use
  Company Number: US-MYLANLABS-2024M1016245

PATIENT
  Age: 48 Year
  Sex: Female
  Weight: 72.57 kg

DRUGS (1)
  1. ESTRADIOL TRANSDERMAL SYSTEM [Suspect]
     Active Substance: ESTRADIOL
     Indication: Hormone replacement therapy
     Dosage: 0.025 MILLIGRAM,QD (TWICE A WEEK)
     Route: 062
     Dates: start: 20240205

REACTIONS (4)
  - Application site erythema [Recovering/Resolving]
  - Application site pain [Recovering/Resolving]
  - Application site swelling [Recovering/Resolving]
  - Application site pruritus [Recovered/Resolved]

NARRATIVE: CASE EVENT DATE: 20240207
